FAERS Safety Report 4878101-3 (Version None)
Quarter: 2006Q1

REPORT INFORMATION
  Report Type: 
  Country: None (occurrence: None)
  Receive Date: 20060110
  Receipt Date: 20060103
  Transmission Date: 20060701
  Serious: No
  Sender: FDA-Public Use
  Company Number: 2006-136580-NL

PATIENT
  Age: 73 Year
  Sex: Female

DRUGS (3)
  1. MIRTAZAPINE [Suspect]
     Dosage: DF ORAL
     Route: 048
  2. PIPAMPERONE [Suspect]
     Dosage: 400 MG ORAL
     Route: 048
  3. QUETIAPINE FUMARATE [Suspect]
     Dosage: 150 MG ORAL
     Route: 048

REACTIONS (6)
  - HYPOTENSION [None]
  - MULTIPLE DRUG OVERDOSE INTENTIONAL [None]
  - SOMNOLENCE [None]
  - SPEECH DISORDER [None]
  - SUICIDE ATTEMPT [None]
  - TACHYCARDIA [None]
